FAERS Safety Report 7546283-0 (Version None)
Quarter: 2011Q2

REPORT INFORMATION
  Report Type: 
  Country: None (occurrence: None)
  Receive Date: 20110614
  Receipt Date: 20040520
  Transmission Date: 20111010
  Serious: Yes (Life-Threatening, Hospitalization)
  Sender: FDA-Public Use
  Company Number: PHFR2004GB01871

PATIENT
  Sex: Male

DRUGS (3)
  1. ACETAMINOPHEN [Concomitant]
  2. CLOZAPINE [Suspect]
     Dosage: 450 MG/DAY
     Route: 048
  3. CLOZAPINE [Suspect]
     Indication: SCHIZOPHRENIA
     Dosage: 300 MG/DAY
     Route: 048
     Dates: start: 20040329, end: 20040414

REACTIONS (6)
  - LABILE BLOOD PRESSURE [None]
  - TACHYCARDIA [None]
  - AORTIC VALVE INCOMPETENCE [None]
  - HYPERHIDROSIS [None]
  - PYREXIA [None]
  - VIRAL INFECTION [None]
